FAERS Safety Report 6079070-3 (Version None)
Quarter: 2009Q1

REPORT INFORMATION
  Report Type: 
  Country: None (occurrence: None)
  Receive Date: 20090216
  Receipt Date: 20090202
  Transmission Date: 20090719
  Serious: Yes (Death)
  Sender: FDA-Public Use
  Company Number: US-ROCHE-612080

PATIENT

DRUGS (3)
  1. CAPECITABINE [Suspect]
     Dosage: INCREASING DOSES OF CAPECITABINE(RANGE 1000-2000 MG/M2/DAY), GIVEN DAYS 1-14
     Route: 048
  2. GEFITINIB [Suspect]
     Route: 048
  3. CELECOXIB [Suspect]
     Route: 048

REACTIONS (1)
  - NEOPLASM [None]
